FAERS Safety Report 15309673 (Version 2)
Quarter: 2018Q3

REPORT INFORMATION
  Report Type: Report from Study
  Country: US (occurrence: US)
  Receive Date: 20180823
  Receipt Date: 20180903
  Transmission Date: 20181010
  Serious: Yes (Hospitalization)
  Sender: FDA-Public Use
  Company Number: US-TEVA-2018-US-946498

PATIENT
  Age: 52 Year
  Sex: Female

DRUGS (4)
  1. PREDNISONE. [Suspect]
     Active Substance: PREDNISONE
     Indication: MYOPATHY
     Route: 065
  2. PREDNISONE. [Suspect]
     Active Substance: PREDNISONE
     Indication: MYOPATHY
     Dosage: DURING FOLLOW UP
     Route: 065
  3. CYCLOPHOSPHAMIDE. [Suspect]
     Active Substance: CYCLOPHOSPHAMIDE
     Indication: MYOPATHY
     Route: 048
  4. IMMUNOGLOBULIN [Concomitant]
     Indication: MYOPATHY
     Route: 042

REACTIONS (5)
  - Intervertebral disc compression [Recovered/Resolved]
  - Spinal fracture [Recovered/Resolved]
  - Clostridium difficile colitis [Recovered/Resolved]
  - Pulmonary embolism [Recovered/Resolved]
  - Pancreatitis [Recovered/Resolved]
